FAERS Safety Report 18067800 (Version 2)
Quarter: 2020Q4

REPORT INFORMATION
  Report Type: Spontaneous
  Country: US (occurrence: US)
  Receive Date: 20200724
  Receipt Date: 20201019
  Transmission Date: 20210113
  Serious: Yes (Hospitalization, Other)
  Sender: FDA-Public Use
  Company Number: US-TAKEDA-2020TUS032061

PATIENT

DRUGS (24)
  1. ALLOPURINOL. [Concomitant]
     Active Substance: ALLOPURINOL
     Dosage: UNK
     Dates: start: 20200416, end: 20200416
  2. BABY ASPIRIN [Concomitant]
     Active Substance: ASPIRIN
     Indication: CEREBROVASCULAR ACCIDENT
     Dosage: UNK
     Dates: start: 20150924
  3. CELECOXIB. [Concomitant]
     Active Substance: CELECOXIB
     Dosage: UNK
     Dates: start: 20160916, end: 20160916
  4. CEPHALEXIN                         /00145501/ [Concomitant]
     Active Substance: CEPHALEXIN
     Dosage: UNK
     Dates: start: 20170216, end: 20170216
  5. ULORIC [Suspect]
     Active Substance: FEBUXOSTAT
     Indication: GOUT
     Dosage: UNK
     Route: 048
     Dates: start: 2009
  6. METHYLPREDNISOLONE. [Concomitant]
     Active Substance: METHYLPREDNISOLONE
     Dosage: UNK
     Dates: start: 20150618, end: 20180712
  7. NABUMETONE. [Concomitant]
     Active Substance: NABUMETONE
     Dosage: UNK
     Dates: start: 20150626, end: 20150626
  8. PRAMIPEXOLE. [Concomitant]
     Active Substance: PRAMIPEXOLE
     Dosage: UNK
     Dates: start: 20161019, end: 20161019
  9. ESCITALOPRAM [Concomitant]
     Active Substance: ESCITALOPRAM OXALATE
     Indication: DEPRESSION
     Dosage: UNK
     Dates: start: 2015
  10. GENTAMICIN. [Concomitant]
     Active Substance: GENTAMICIN
     Dosage: UNK
     Route: 050
     Dates: start: 20160307, end: 20160307
  11. CLARITHROMYCIN. [Concomitant]
     Active Substance: CLARITHROMYCIN
     Dosage: UNK
     Dates: start: 20160307, end: 20160307
  12. AMOXICILLIN. [Concomitant]
     Active Substance: AMOXICILLIN
     Dosage: UNK
     Dates: start: 20180626, end: 20181210
  13. RANITIDINE. [Concomitant]
     Active Substance: RANITIDINE
     Dosage: UNK
     Dates: start: 20190214, end: 20190622
  14. METHYLPHENIDATE. [Concomitant]
     Active Substance: METHYLPHENIDATE
     Indication: FATIGUE
     Dosage: UNK
     Dates: start: 2016
  15. DIAZEPAM. [Concomitant]
     Active Substance: DIAZEPAM
     Dosage: UNK
     Dates: start: 20150622, end: 20150622
  16. OXAPROZIN. [Concomitant]
     Active Substance: OXAPROZIN
     Dosage: UNK
     Dates: start: 20170117, end: 20170117
  17. POLYMYXIN B W/TRIMETHOPRIM [Concomitant]
     Dosage: UNK
     Route: 050
     Dates: start: 20190206, end: 20190206
  18. ALAWAY [Concomitant]
     Active Substance: KETOTIFEN FUMARATE
     Dosage: UNK
     Route: 050
     Dates: start: 20190206, end: 20190206
  19. PROAIR HFA [Concomitant]
     Active Substance: ALBUTEROL SULFATE
     Dosage: UNK
     Dates: start: 20160907, end: 20160907
  20. ULORIC [Suspect]
     Active Substance: FEBUXOSTAT
     Dosage: UNK
     Route: 048
     Dates: start: 20190809, end: 20200327
  21. ULORIC [Suspect]
     Active Substance: FEBUXOSTAT
     Dosage: 40 MILLIGRAM
     Route: 048
     Dates: start: 20150202, end: 20190617
  22. ALLOPURINOL. [Concomitant]
     Active Substance: ALLOPURINOL
     Indication: GOUT
     Dosage: UNK
     Dates: start: 2019
  23. ESCITALOPRAM [Concomitant]
     Active Substance: ESCITALOPRAM OXALATE
     Indication: ANXIETY
     Dosage: UNK
     Dates: start: 20141211, end: 20200415
  24. HYDROCODONE BITARTRATE AND ACETAMINOPHEN [Concomitant]
     Active Substance: ACETAMINOPHEN\HYDROCODONE BITARTRATE
     Dosage: UNK
     Dates: start: 20150618, end: 20190418

REACTIONS (2)
  - Cerebrovascular accident [Unknown]
  - Back injury [Unknown]

NARRATIVE: CASE EVENT DATE: 201506
